FAERS Safety Report 18605590 (Version 4)
Quarter: 2021Q1

REPORT INFORMATION
  Report Type: Report from Study
  Country: ES (occurrence: ES)
  Receive Date: 20201211
  Receipt Date: 20210210
  Transmission Date: 20210419
  Serious: Yes (Hospitalization)
  Sender: FDA-Public Use
  Company Number: ES-ROCHE-2721883

PATIENT
  Age: 61 Year
  Sex: Male
  Weight: 76 kg

DRUGS (17)
  1. GLYCOPYRRONIUM [Concomitant]
     Active Substance: GLYCOPYRRONIUM
     Indication: PROPHYLAXIS
     Dosage: 43 UG
     Route: 055
     Dates: start: 20201020
  2. INDACATEROL [Concomitant]
     Active Substance: INDACATEROL
     Indication: PROPHYLAXIS
     Dosage: 85 UG
     Route: 055
     Dates: start: 20201020
  3. METOCLOPRAMIDE. [Concomitant]
     Active Substance: METOCLOPRAMIDE
     Route: 042
     Dates: start: 20201125, end: 20201201
  4. PARACETAMOL [Concomitant]
     Active Substance: ACETAMINOPHEN
     Indication: PYREXIA
     Route: 042
     Dates: start: 20201124, end: 20201201
  5. LORAZEPAM. [Concomitant]
     Active Substance: LORAZEPAM
     Indication: PROPHYLAXIS
     Route: 048
     Dates: start: 20201125, end: 20201129
  6. ENOXAPARIN [Concomitant]
     Active Substance: ENOXAPARIN
     Route: 058
     Dates: start: 20201127, end: 20201201
  7. TRAMADOL. [Concomitant]
     Active Substance: TRAMADOL
     Indication: PYREXIA
     Route: 042
     Dates: start: 20201125, end: 20201201
  8. MTIG 7192A [Suspect]
     Active Substance: TIRAGOLUMAB
     Indication: NON-SMALL CELL LUNG CANCER
     Dosage: ON 12/NOV/2020, THE PATIENT RECEIVED THE MOST RECENT DOSE OF MTIG 7192A PRIOR AE/SAE ONSET.
     Route: 042
     Dates: start: 20201112
  9. ATEZOLIZUMAB. [Suspect]
     Active Substance: ATEZOLIZUMAB
     Indication: NON-SMALL CELL LUNG CANCER
     Dosage: ON 12/NOV/2020, THE PATIENT RECEIVED THE MOST RECENT DOSE OF ATEZOLIZUMAB PRIOR TO AE/SAE ONSET.
     Route: 041
     Dates: start: 20201112
  10. ZOLPIDEM [Concomitant]
     Active Substance: ZOLPIDEM TARTRATE
     Route: 048
     Dates: start: 20201129, end: 20201201
  11. METFORMINE [Concomitant]
     Active Substance: METFORMIN HYDROCHLORIDE
     Indication: DIABETES MELLITUS
     Route: 048
     Dates: start: 20200518
  12. PIPERACILLIN. [Concomitant]
     Active Substance: PIPERACILLIN SODIUM
     Indication: PYREXIA
     Route: 042
     Dates: start: 20201124, end: 20201201
  13. DIAZEPAM. [Concomitant]
     Active Substance: DIAZEPAM
     Route: 048
     Dates: start: 20201129, end: 20201201
  14. TAZOBACTAM [Concomitant]
     Active Substance: TAZOBACTAM
     Indication: PYREXIA
     Route: 042
     Dates: start: 20201124, end: 20201201
  15. METAMIZOLE [Concomitant]
     Active Substance: METAMIZOLE
     Indication: PYREXIA
     Route: 042
     Dates: start: 20201125, end: 20201201
  16. METAMIZOLE MAGNESIUM [Concomitant]
     Active Substance: METAMIZOLE MAGNESIUM
     Indication: PAIN
     Route: 048
     Dates: start: 20201104
  17. MEGESTROL [Concomitant]
     Active Substance: MEGESTROL
     Route: 048
     Dates: start: 20201127, end: 20201201

REACTIONS (1)
  - Inappropriate antidiuretic hormone secretion [Recovered/Resolved]

NARRATIVE: CASE EVENT DATE: 20201124
